FAERS Safety Report 14554324 (Version 2)
Quarter: 2018Q2

REPORT INFORMATION
  Report Type: Spontaneous
  Country: US (occurrence: US)
  Receive Date: 20180220
  Receipt Date: 20180525
  Transmission Date: 20180711
  Serious: No
  Sender: FDA-Public Use
  Company Number: US-BAUSCH-BL-2017-036290

PATIENT
  Age: 65 Year
  Sex: Male
  Weight: 97.61 kg

DRUGS (2)
  1. FLOMAX [Concomitant]
     Active Substance: TAMSULOSIN HYDROCHLORIDE
     Indication: PRODUCT USED FOR UNKNOWN INDICATION
  2. VYZULTA [Suspect]
     Active Substance: LATANOPROSTENE BUNOD
     Indication: GLAUCOMA
     Route: 047
     Dates: start: 201712, end: 20180115

REACTIONS (2)
  - Dysuria [Not Recovered/Not Resolved]
  - Eye irritation [Not Recovered/Not Resolved]

NARRATIVE: CASE EVENT DATE: 201712
